FAERS Safety Report 15363863 (Version 1)
Quarter: 2018Q3

REPORT INFORMATION
  Report Type: Spontaneous
  Country: US (occurrence: US)
  Receive Date: 20180831
  Receipt Date: 20180831
  Transmission Date: 20181010
  Serious: Yes (Hospitalization)
  Sender: FDA-Public Use
  Company Number: None

PATIENT
  Age: 80 Year
  Sex: Female
  Weight: 58.2 kg

DRUGS (1)
  1. VITAMIN D3 [Suspect]
     Active Substance: CHOLECALCIFEROL
     Indication: VITAMIN D DEFICIENCY
     Route: 048
     Dates: start: 20171109

REACTIONS (4)
  - Electrocardiogram T wave abnormal [None]
  - Asthma [None]
  - Left ventricular dysfunction [None]
  - Sinus bradycardia [None]

NARRATIVE: CASE EVENT DATE: 20140811
